FAERS Safety Report 19681251 (Version 1)
Quarter: 2021Q3

REPORT INFORMATION
  Report Type: Spontaneous
  Country: US (occurrence: US)
  Receive Date: 20210810
  Receipt Date: 20210810
  Transmission Date: 20211014
  Serious: Yes (Other)
  Sender: FDA-Public Use
  Company Number: US-IGSA-SR10010157

PATIENT
  Age: 66 Year
  Sex: Female
  Weight: 100 kg

DRUGS (13)
  1. GAMUNEX?C [Suspect]
     Active Substance: HUMAN IMMUNOGLOBULIN G
     Indication: IMMUNODEFICIENCY COMMON VARIABLE
     Dosage: 20 G, Q.2WK.
     Route: 041
     Dates: start: 20190624, end: 20190624
  2. ROSUVASTATIN. [Concomitant]
     Active Substance: ROSUVASTATIN
     Dosage: 50 MG, QD
     Dates: start: 20180223
  3. GAMUNEX?C [Suspect]
     Active Substance: HUMAN IMMUNOGLOBULIN G
     Dosage: 10 G, Q.2WK.
     Route: 041
     Dates: start: 20190624, end: 20190624
  4. ALPRAZOLAM. [Concomitant]
     Active Substance: ALPRAZOLAM
     Dosage: 0.5 MG, PRN
     Dates: start: 20150707
  5. VENLAFAXINE HCL [Concomitant]
     Active Substance: VENLAFAXINE HYDROCHLORIDE
     Dosage: 150 MG, QD
     Dates: start: 20161107
  6. TRIAMCINOLONE [Concomitant]
     Active Substance: TRIAMCINOLONE
     Indication: RASH
     Dosage: UNK UNK, BID
     Route: 061
     Dates: start: 20190702
  7. GAMUNEX?C [Suspect]
     Active Substance: HUMAN IMMUNOGLOBULIN G
     Dosage: 5 G, Q.2WK.
     Route: 041
     Dates: start: 20190624, end: 20190624
  8. BIOTIN [Concomitant]
     Active Substance: BIOTIN
     Dosage: 10000 ?G, QD
     Dates: start: 20171127
  9. LINZESS [Concomitant]
     Active Substance: LINACLOTIDE
     Dosage: 72 ?G, QOD
     Dates: start: 20170707
  10. ASPIRIN                            /00002701/ [Concomitant]
     Active Substance: ASPIRIN
     Dosage: 81 MG, QD
     Dates: start: 20150707
  11. NEXIUM [Concomitant]
     Active Substance: ESOMEPRAZOLE MAGNESIUM
     Dosage: 40 MG, PRN
     Dates: start: 20160125
  12. QUETIAPINE FUMARATE. [Concomitant]
     Active Substance: QUETIAPINE FUMARATE
     Dosage: 25 MG, Q.H.S.
     Dates: start: 20190609
  13. PIROXICAM. [Concomitant]
     Active Substance: PIROXICAM
     Dosage: 20 MG, QD
     Dates: start: 20150707

REACTIONS (5)
  - Nausea [Recovered/Resolved]
  - Influenza like illness [Recovered/Resolved]
  - Rash erythematous [Recovered/Resolved]
  - Headache [Recovered/Resolved]
  - Pruritus [Recovering/Resolving]

NARRATIVE: CASE EVENT DATE: 20190624
